FAERS Safety Report 10646848 (Version 1)
Quarter: 2014Q4

REPORT INFORMATION
  Report Type: Spontaneous
  Country: FR (occurrence: FR)
  Receive Date: 20141211
  Receipt Date: 20141211
  Transmission Date: 20150529
  Serious: Yes (Hospitalization, Other)
  Sender: FDA-Public Use
  Company Number: FR-PFIZER INC-2014333320

PATIENT
  Age: 88 Year
  Sex: Female

DRUGS (15)
  1. COUMADINE [Concomitant]
     Active Substance: WARFARIN SODIUM
     Dosage: 3 MG, 1X/DAY
     Route: 048
     Dates: start: 20140212
  2. LYRICA [Interacting]
     Active Substance: PREGABALIN
     Dosage: 175 IN MORNING, 150 IN EVENING
     Route: 048
     Dates: start: 201402
  3. NEFOPAM MYLAN [Interacting]
     Active Substance: NEFOPAM
     Indication: PROCEDURAL PAIN
     Dosage: 80 MG, DAILY, AS NEEDED
     Route: 042
     Dates: start: 20140804, end: 201408
  4. LASILIX [Concomitant]
     Active Substance: FUROSEMIDE
     Dosage: 40 MG, 1X/DAY
     Route: 048
  5. CALCIPARINE SUBCUTANEOUS [Concomitant]
     Dosage: 0.3 ML, 2X/DAY
     Route: 058
     Dates: start: 20140802, end: 201408
  6. IPRATROPIUM MYLAN [Concomitant]
     Active Substance: IPRATROPIUM
     Dosage: 1 DF, 2X/DAY
     Route: 045
     Dates: end: 201408
  7. CELIPROLOL [Concomitant]
     Active Substance: CELIPROLOL
     Indication: PRODUCT USED FOR UNKNOWN INDICATION
     Dosage: 200 MG, 1X/DAY
     Route: 048
  8. EUPANTOL [Concomitant]
     Active Substance: PANTOPRAZOLE SODIUM
     Dosage: 40 MG, 1X/DAY
     Route: 048
     Dates: end: 20140212
  9. LASILIX [Concomitant]
     Active Substance: FUROSEMIDE
     Dosage: 20 MG, 1X/DAY
  10. PARACETAMOL [Concomitant]
     Active Substance: ACETAMINOPHEN
     Dosage: 1 G, 4X/DAY
     Route: 048
  11. SALBUTAMOL MYLAN [Concomitant]
     Dosage: 1 DF, 2X/DAY
     Route: 045
     Dates: end: 201408
  12. LYRICA [Suspect]
     Active Substance: PREGABALIN
     Dosage: 300 MG, DAILY
  13. MORPHINE [Interacting]
     Active Substance: MORPHINE
     Indication: PROCEDURAL PAIN
     Dosage: 20 MG, DAILY, AS NEEDED
     Route: 058
     Dates: start: 20140804, end: 201408
  14. CORDARONE [Concomitant]
     Active Substance: AMIODARONE HYDROCHLORIDE
     Indication: PAROXYSMAL ARRHYTHMIA
     Dosage: 200 MG, 1X/DAY (5 DAYS WEEKLY)
     Route: 048
     Dates: end: 20140807
  15. APROVEL [Concomitant]
     Active Substance: IRBESARTAN
     Indication: PRODUCT USED FOR UNKNOWN INDICATION
     Dosage: 75 MG, 1X/DAY
     Route: 048

REACTIONS (10)
  - Dry mouth [Recovered/Resolved]
  - Faecaloma [Recovered/Resolved]
  - Speech disorder [Unknown]
  - Humerus fracture [Unknown]
  - Renal failure [Unknown]
  - Drug interaction [Recovered/Resolved]
  - Cognitive disorder [Recovered/Resolved]
  - Disturbance in attention [Recovered/Resolved]
  - Nausea [Recovered/Resolved]
  - Altered state of consciousness [Unknown]

NARRATIVE: CASE EVENT DATE: 20140806
